FAERS Safety Report 4839623-4 (Version None)
Quarter: 2005Q4

REPORT INFORMATION
  Report Type: 
  Country: None (occurrence: None)
  Receive Date: 20051129
  Receipt Date: 20050413
  Transmission Date: 20060501
  Serious: Yes (Other)
  Sender: FDA-Public Use
  Company Number: US-GLAXOSMITHKLINE-A0554017A

PATIENT
  Age: 82 Year
  Sex: Female

DRUGS (8)
  1. WELLBUTRIN [Suspect]
     Indication: DEPRESSION
     Dosage: 150MG PER DAY
     Route: 048
  2. VIOXX [Suspect]
  3. NORVASC [Concomitant]
  4. DYRENIUM [Concomitant]
  5. CLONAZEPAM [Concomitant]
  6. LEVOXYL [Concomitant]
  7. MACROBID [Concomitant]
  8. PREVACID [Concomitant]

REACTIONS (3)
  - CEREBROVASCULAR ACCIDENT [None]
  - HYPERTENSION [None]
  - HYPOTENSION [None]
